FAERS Safety Report 6198407-8 (Version None)
Quarter: 2009Q2

REPORT INFORMATION
  Report Type: 
  Country: None (occurrence: None)
  Receive Date: 20090519
  Receipt Date: 20090506
  Transmission Date: 20091009
  Serious: Yes (Hospitalization)
  Sender: FDA-Public Use
  Company Number: 235053K09USA

PATIENT
  Age: 64 Year
  Sex: Male
  Weight: 90 kg

DRUGS (14)
  1. REBIF [Suspect]
     Indication: MULTIPLE SCLEROSIS
     Dosage: 44 MCG, 3 IN 1 WEEKS, SUBCUTANEOUS
     Route: 058
     Dates: start: 20070328
  2. MOTRIN [Concomitant]
  3. BACLOFEN [Concomitant]
  4. SINEMET CR [Concomitant]
  5. CYMBALTA [Concomitant]
  6. FOLIC AICD (FOLIC ACID) [Concomitant]
  7. IRON PILL (IRON) [Concomitant]
  8. OXYCONTIN [Concomitant]
  9. OXYCODONE HCL [Concomitant]
  10. PREVACID [Concomitant]
  11. PROVIGIL [Concomitant]
  12. PROVENTIL HFA (SALBUTAMOL /00139501/) [Concomitant]
  13. SPIRIVA [Concomitant]
  14. ASPIRIN [Concomitant]

REACTIONS (1)
  - CARDIAC FAILURE CONGESTIVE [None]
